FAERS Safety Report 24875604 (Version 1)
Quarter: 2025Q1

REPORT INFORMATION
  Report Type: Spontaneous
  Country: US (occurrence: US)
  Receive Date: 20250122
  Receipt Date: 20250122
  Transmission Date: 20250408
  Serious: No
  Sender: GLAUKOS
  Company Number: US-GLK-002417

PATIENT

DRUGS (2)
  1. PHOTREXA [Suspect]
     Active Substance: RIBOFLAVIN 5^-PHOSPHATE SODIUM
     Indication: Product used for unknown indication
     Route: 047
     Dates: start: 20250115, end: 20250115
  2. PHOTREXA VISCOUS [Suspect]
     Active Substance: RIBOFLAVIN 5^-PHOSPHATE SODIUM
     Indication: Product used for unknown indication
     Route: 047
     Dates: start: 20250115, end: 20250115

REACTIONS (4)
  - Agitation [Unknown]
  - Ocular discomfort [Unknown]
  - Therapy interrupted [Unknown]
  - Eye irritation [Unknown]

NARRATIVE: CASE EVENT DATE: 20250115
